FAERS Safety Report 10716417 (Version 1)
Quarter: 2015Q1

REPORT INFORMATION
  Report Type: Spontaneous
  Country: US (occurrence: None)
  Receive Date: 20150115
  Receipt Date: 20150115
  Transmission Date: 20150721
  Serious: Yes (Hospitalization)
  Sender: FDA-Public Use
  Company Number: None

PATIENT
  Age: 44 Year
  Sex: Male
  Weight: 86.6 kg

DRUGS (2)
  1. PACLITAXEL. [Suspect]
     Active Substance: PACLITAXEL
     Dates: end: 20150102
  2. CARBOPLATIN. [Suspect]
     Active Substance: CARBOPLATIN
     Dates: end: 20150102

REACTIONS (8)
  - Obstruction gastric [None]
  - Anaemia [None]
  - Abdominal pain [None]
  - Gastric dilatation [None]
  - Pain [None]
  - Impaired gastric emptying [None]
  - Leukopenia [None]
  - Pyrexia [None]

NARRATIVE: CASE EVENT DATE: 20150103
